FAERS Safety Report 15958877 (Version 2)
Quarter: 2019Q1

REPORT INFORMATION
  Report Type: Report from Study
  Country: US (occurrence: US)
  Receive Date: 20190213
  Receipt Date: 20190315
  Transmission Date: 20190417
  Serious: Yes (Hospitalization)
  Sender: FDA-Public Use
  Company Number: US-ROCHE-2261154

PATIENT
  Age: 69 Year
  Sex: Female
  Weight: 72.64 kg

DRUGS (3)
  1. OCREVUS [Suspect]
     Active Substance: OCRELIZUMAB
     Route: 065
     Dates: start: 201801
  2. OCREVUS [Suspect]
     Active Substance: OCRELIZUMAB
     Indication: RELAPSING MULTIPLE SCLEROSIS
     Dosage: SECOND DOSE: 27/JUL/2017
     Route: 065
     Dates: start: 20170711
  3. OCREVUS [Suspect]
     Active Substance: OCRELIZUMAB
     Route: 065
     Dates: start: 20180130

REACTIONS (8)
  - Blood creatinine increased [Recovered/Resolved]
  - Blood creatinine decreased [Recovered/Resolved]
  - Joint injury [Recovered/Resolved]
  - Swelling [Recovered/Resolved]
  - Clostridium difficile infection [Recovered/Resolved]
  - Wound infection [Recovered/Resolved]
  - Renal disorder [Recovered/Resolved]
  - Malaise [Recovered/Resolved]

NARRATIVE: CASE EVENT DATE: 20180803
